FAERS Safety Report 15284918 (Version 1)
Quarter: 2018Q3

REPORT INFORMATION
  Report Type: Spontaneous
  Country: None (occurrence: US)
  Receive Date: 20180816
  Receipt Date: 20180816
  Transmission Date: 20181010
  Serious: No
  Sender: FDA-Public Use
  Company Number: US-NEXGEN PHARMA, INC.-2053813

PATIENT
  Sex: Female

DRUGS (1)
  1. POLYETHYLENE GLYCOL 3350 NF [Suspect]
     Active Substance: POLYETHYLENE GLYCOL 3350
     Route: 048

REACTIONS (1)
  - Drug ineffective [Unknown]
